FAERS Safety Report 17692793 (Version 1)
Quarter: 2020Q2

REPORT INFORMATION
  Report Type: Spontaneous
  Country: US (occurrence: US)
  Receive Date: 20200422
  Receipt Date: 20200422
  Transmission Date: 20200714
  Serious: No
  Sender: FDA-Public Use
  Company Number: US-ANTARES PHARMA, INC.-2020-SPO-TX-0113

PATIENT
  Age: 39 Year
  Sex: Male

DRUGS (1)
  1. XYOSTED [Suspect]
     Active Substance: TESTOSTERONE ENANTHATE
     Indication: HYPOGONADISM
     Dosage: UNK, QWK
     Route: 058
     Dates: start: 202002

REACTIONS (2)
  - Injection site pain [Recovered/Resolved]
  - Product administration error [Recovered/Resolved]
